FAERS Safety Report 8111886-1 (Version None)
Quarter: 2012Q1

REPORT INFORMATION
  Report Type: 
  Country: None (occurrence: None)
  Receive Date: 20120203
  Receipt Date: 20120127
  Transmission Date: 20120608
  Serious: Yes (Other)
  Sender: FDA-Public Use
  Company Number: US-JNJFOC-20120112731

PATIENT
  Sex: Female
  Weight: 77.11 kg

DRUGS (2)
  1. DILAUDID [Suspect]
     Indication: BREAKTHROUGH PAIN
     Route: 048
     Dates: start: 20090801
  2. FENTANYL-100 [Suspect]
     Indication: BONE PAIN
     Route: 065
     Dates: start: 20090801

REACTIONS (8)
  - BREAKTHROUGH PAIN [None]
  - INSOMNIA [None]
  - MEMORY IMPAIRMENT [None]
  - BURNING SENSATION [None]
  - LYMPHOMA [None]
  - HERPES ZOSTER [None]
  - CARDIAC DISORDER [None]
  - INCORRECT DOSE ADMINISTERED [None]
